FAERS Safety Report 8833854 (Version 3)
Quarter: 2014Q1

REPORT INFORMATION
  Report Type: Spontaneous
  Country: GB (occurrence: GB)
  Receive Date: 20121011
  Receipt Date: 20140317
  Transmission Date: 20141002
  Serious: Yes (Hospitalization)
  Sender: FDA-Public Use
  Company Number: GB-009507513-1210GBR004273

PATIENT
  Age: 1 Year
  Sex: Male

DRUGS (2)
  1. MONTELUKAST SODIUM [Suspect]
     Indication: WHEEZING
     Dosage: 4 MICROGRAM, QD
     Route: 048
  2. FLUTICASONE PROPIONATE [Suspect]
     Indication: WHEEZING
     Dosage: 100 MICROGRAM, QD

REACTIONS (1)
  - Wheezing [Unknown]
